FAERS Safety Report 6565140-X (Version None)
Quarter: 2010Q1

REPORT INFORMATION
  Report Type: 
  Country: None (occurrence: None)
  Receive Date: 20100201
  Receipt Date: 20100126
  Transmission Date: 20100710
  Serious: Yes (Death)
  Sender: FDA-Public Use
  Company Number: B0597384A

PATIENT
  Sex: Female

DRUGS (16)
  1. ROPINIROLE HYDROCHLORIDE [Suspect]
     Indication: PARKINSON'S DISEASE
     Dosage: 9MG PER DAY
     Route: 048
  2. RISPERDAL [Suspect]
     Indication: PARKINSON'S DISEASE
     Route: 065
  3. ASPIRIN [Concomitant]
     Dosage: 75MG PER DAY
     Route: 048
  4. DIGOXIN [Concomitant]
     Dosage: 65MCG PER DAY
     Route: 048
  5. FUROSEMIDE [Concomitant]
     Dosage: 20MG PER DAY
     Route: 048
  6. SINEMET CR [Concomitant]
     Route: 048
  7. LACTULOSE [Concomitant]
     Dosage: 10ML TWICE PER DAY
     Route: 048
  8. AMOXIDAL [Concomitant]
     Dosage: 250MG THREE TIMES PER DAY
  9. SPARTEINE [Concomitant]
     Route: 048
  10. CARBIMAZOLE [Concomitant]
     Dosage: 5MG PER DAY
     Route: 048
  11. CARBIDOPA [Concomitant]
     Indication: PARKINSON'S DISEASE
     Route: 065
  12. LEVODOPA [Concomitant]
     Indication: PARKINSON'S DISEASE
     Route: 065
  13. BISOPROLOL [Concomitant]
     Dosage: 5MG PER DAY
     Route: 065
  14. FORTISIP [Concomitant]
     Route: 065
  15. IRON [Concomitant]
     Route: 048
  16. SINEMET [Concomitant]
     Dosage: 250MCG PER DAY
     Route: 048

REACTIONS (2)
  - DEATH [None]
  - MEDICATION ERROR [None]
